FAERS Safety Report 9373953 (Version 1)
Quarter: 2013Q2

REPORT INFORMATION
  Report Type: Spontaneous
  Country: IT (occurrence: IT)
  Receive Date: 20130628
  Receipt Date: 20130628
  Transmission Date: 20140414
  Serious: Yes (Other)
  Sender: FDA-Public Use
  Company Number: IT-MYLANLABS-2013S1013326

PATIENT
  Age: 49 Year
  Sex: Female

DRUGS (1)
  1. ALPRAZOLAM [Suspect]
     Indication: ANXIETY
     Route: 048
     Dates: start: 20130519, end: 20130519

REACTIONS (3)
  - Overdose [Recovering/Resolving]
  - Cachexia [Recovering/Resolving]
  - Somnolence [Recovering/Resolving]
